FAERS Safety Report 7059555-3 (Version None)
Quarter: 2010Q4

REPORT INFORMATION
  Report Type: 
  Country: None (occurrence: None)
  Receive Date: 20101025
  Receipt Date: 20101012
  Transmission Date: 20110411
  Serious: Yes (Disabling)
  Sender: FDA-Public Use
  Company Number: PHHY2010RO39717

PATIENT
  Sex: Female

DRUGS (2)
  1. ZOMETA [Suspect]
     Indication: BREAST CANCER
     Dosage: 4 MG, QMO
  2. THEOPHILINUM [Concomitant]
     Dosage: 300 MG

REACTIONS (9)
  - APHAGIA [None]
  - BONE DISORDER [None]
  - GINGIVAL INFECTION [None]
  - ORAL DISORDER [None]
  - ORAL SURGERY [None]
  - OSTEONECROSIS OF JAW [None]
  - PAIN [None]
  - STOMATITIS [None]
  - SWELLING [None]
